FAERS Safety Report 7591442-4 (Version None)
Quarter: 2011Q3

REPORT INFORMATION
  Report Type: 
  Country: None (occurrence: None)
  Receive Date: 20110701
  Receipt Date: 20110701
  Transmission Date: 20111222
  Serious: No
  Sender: FDA-Public Use
  Company Number: None

PATIENT
  Sex: Male

DRUGS (1)
  1. DORZOLAMIDE HCL AND TIMOLOL MALEATE [Suspect]
     Indication: OPEN ANGLE GLAUCOMA
     Dosage: 1 GTT BID OU
     Route: 047
     Dates: start: 20100101

REACTIONS (2)
  - INTRAOCULAR PRESSURE INCREASED [None]
  - PRODUCT QUALITY ISSUE [None]
